FAERS Safety Report 20411173 (Version 1)
Quarter: 2022Q1

REPORT INFORMATION
  Report Type: Spontaneous
  Country: US (occurrence: US)
  Receive Date: 20220201
  Receipt Date: 20220201
  Transmission Date: 20220424
  Serious: No
  Sender: FDA-Public Use
  Company Number: US-BAXTER-2022BAX001825

PATIENT
  Sex: Female

DRUGS (1)
  1. PENICILLIN G POTASSIUM [Suspect]
     Active Substance: PENICILLIN G POTASSIUM
     Indication: Product used for unknown indication
     Route: 065

REACTIONS (1)
  - Drug hypersensitivity [Unknown]
